FAERS Safety Report 20521282 (Version 1)
Quarter: 2022Q1

REPORT INFORMATION
  Report Type: Report from Study
  Country: CA (occurrence: CA)
  Receive Date: 20220226
  Receipt Date: 20220226
  Transmission Date: 20220423
  Serious: Yes (Hospitalization)
  Sender: FDA-Public Use
  Company Number: CA-ABBVIE-22K-028-4292962-00

PATIENT
  Sex: Male
  Weight: 158.7 kg

DRUGS (3)
  1. HUMIRA [Suspect]
     Active Substance: ADALIMUMAB
     Indication: Crohn^s disease
     Route: 058
     Dates: start: 20170127
  2. IMODIUM [Concomitant]
     Active Substance: LOPERAMIDE HYDROCHLORIDE
     Indication: Product used for unknown indication
     Route: 048
  3. PREDNISONE [Concomitant]
     Active Substance: PREDNISONE
     Indication: Product used for unknown indication

REACTIONS (11)
  - Gastrointestinal stenosis [Unknown]
  - Abdominal adhesions [Unknown]
  - Abdominal pain [Unknown]
  - Abdominal discomfort [Unknown]
  - Arthralgia [Unknown]
  - Therapeutic response shortened [Unknown]
  - Short-bowel syndrome [Unknown]
  - Feeling abnormal [Unknown]
  - Stress [Unknown]
  - Nausea [Unknown]
  - Constipation [Unknown]
